FAERS Safety Report 4884810-2 (Version None)
Quarter: 2005Q4

REPORT INFORMATION
  Report Type: 
  Country: None (occurrence: None)
  Receive Date: 20051201
  Receipt Date: 20050919
  Transmission Date: 20060501
  Serious: No
  Sender: FDA-Public Use
  Company Number: 2005PV002272

PATIENT
  Age: 64 Year
  Sex: Male
  Weight: 155.1302 kg

DRUGS (4)
  1. BYETTA [Suspect]
     Indication: DIABETES MELLITUS NON-INSULIN-DEPENDENT
     Dosage: 5 MCG; BID; SC; 10  MCG; BID; SC; 5 MCG; BID; SC
     Route: 058
     Dates: start: 20050722, end: 20050821
  2. BYETTA [Suspect]
     Indication: DIABETES MELLITUS NON-INSULIN-DEPENDENT
     Dosage: 5 MCG; BID; SC; 10  MCG; BID; SC; 5 MCG; BID; SC
     Route: 058
     Dates: start: 20050822, end: 20050824
  3. BYETTA [Suspect]
     Indication: DIABETES MELLITUS NON-INSULIN-DEPENDENT
     Dosage: 5 MCG; BID; SC; 10  MCG; BID; SC; 5 MCG; BID; SC
     Route: 058
     Dates: start: 20050913
  4. AVANDIA [Concomitant]

REACTIONS (3)
  - DERMATITIS BULLOUS [None]
  - FUNGAL SKIN INFECTION [None]
  - NAUSEA [None]
